FAERS Safety Report 24113900 (Version 1)
Quarter: 2024Q3

REPORT INFORMATION
  Report Type: Report from Study
  Country: US (occurrence: US)
  Receive Date: 20240720
  Receipt Date: 20240720
  Transmission Date: 20241017
  Serious: Yes (Other)
  Sender: AMNEAL
  Company Number: US-AMNEAL PHARMACEUTICALS-2024-AMRX-02572

PATIENT
  Sex: Female

DRUGS (12)
  1. CARBIDOPA\LEVODOPA [Suspect]
     Active Substance: CARBIDOPA\LEVODOPA
     Indication: Parkinson^s disease
     Dosage: (36.25-145 MG) 2 CAPSULES, 5 /DAY
     Route: 048
     Dates: end: 20240415
  2. CARBIDOPA\LEVODOPA [Suspect]
     Active Substance: CARBIDOPA\LEVODOPA
     Dosage: (36.25-145 MG) 3 CAPSULES, 4 /DAY
     Route: 048
  3. CARBIDOPA\LEVODOPA [Suspect]
     Active Substance: CARBIDOPA\LEVODOPA
     Dosage: (36.25-145 MG) 2 CAPSULES, 3 /DAY AND 1 CAPSULE HS
     Route: 048
  4. AMANTADINE HYDROCHLORIDE [Concomitant]
     Active Substance: AMANTADINE HYDROCHLORIDE
     Indication: Product used for unknown indication
     Dosage: (100 MG) 1 TABLETS, 2 /DAY
     Route: 048
  5. INBRIJA [Concomitant]
     Active Substance: LEVODOPA
     Indication: Parkinson^s disease
     Dosage: (42 MG) 2 CAPSULES, 5 /DAY AS NEEDED
  6. METHOCARBAMOL [Concomitant]
     Active Substance: METHOCARBAMOL
     Indication: Muscle spasms
     Dosage: 750 MILLIGRAM, PRN
     Route: 048
  7. PRAMIPEXOLE DIHYDROCHLORIDE [Concomitant]
     Active Substance: PRAMIPEXOLE DIHYDROCHLORIDE
     Indication: Product used for unknown indication
     Dosage: (0.5 MG) 1 TABLETS, 5 /DAY
     Route: 048
  8. CARBIDOPA LEVODOPA [Concomitant]
     Active Substance: CARBIDOPA\LEVODOPA
     Indication: Parkinson^s disease
     Dosage: (50-200 MG) 1 TABLETS, BEDTIME
     Route: 048
     Dates: start: 20230725, end: 20230803
  9. CARBIDOPA LEVODOPA [Concomitant]
     Active Substance: CARBIDOPA\LEVODOPA
     Dosage: (25-100 MG) TAKE 2 TABLETS ORALLY AT 7-8AM, 2 TABLETS AT 12:30-2:30PM, 2 TABLETS AT 7-8PM, 1 TABLET
     Route: 048
     Dates: end: 20240604
  10. CARBIDOPA LEVODOPA [Concomitant]
     Active Substance: CARBIDOPA\LEVODOPA
     Dosage: 2 TABS PER DOSE 1ST 3 DOSES, 1 TAB HS
     Route: 048
  11. RIVASTIGMINE [Concomitant]
     Active Substance: RIVASTIGMINE
     Indication: Product used for unknown indication
     Dosage: (4.6 MG/24HR) 1 PATCH DAILY
     Route: 062
     Dates: end: 20240604
  12. SINEMET [Concomitant]
     Active Substance: CARBIDOPA\LEVODOPA
     Indication: Parkinson^s disease
     Dosage: UNK
     Route: 065

REACTIONS (5)
  - Parkinson^s disease [Unknown]
  - Therapeutic response shortened [Unknown]
  - Gait disturbance [Unknown]
  - Dysphonia [Unknown]
  - Product use issue [Unknown]
